FAERS Safety Report 21798798 (Version 1)
Quarter: 2022Q4

REPORT INFORMATION
  Report Type: Spontaneous
  Country: US (occurrence: None)
  Receive Date: 20221229
  Receipt Date: 20221229
  Transmission Date: 20230112
  Serious: No
  Sender: FDA-Public Use
  Company Number: None

PATIENT
  Sex: Female

DRUGS (1)
  1. OTEZLA [Suspect]
     Active Substance: APREMILAST
     Indication: Psoriasis
     Dosage: 30 MG TWICE A DAY BY MOUTH
     Route: 048
     Dates: start: 20220729

REACTIONS (4)
  - Blister [None]
  - Eczema [None]
  - Dermatitis [None]
  - Therapy non-responder [None]
